FAERS Safety Report 6085576-3 (Version None)
Quarter: 2009Q1

REPORT INFORMATION
  Report Type: 
  Country: None (occurrence: None)
  Receive Date: 20090217
  Receipt Date: 20090217
  Transmission Date: 20090719
  Serious: No
  Sender: FDA-Public Use
  Company Number: None

PATIENT
  Sex: Male

DRUGS (6)
  1. CEFTRIAXONE [Suspect]
     Indication: INFECTION
     Dosage: 350 MG
  2. ZITHROMAX [Concomitant]
  3. LASIX [Concomitant]
  4. TOPROL-XL [Concomitant]
  5. LISINOPRIL [Concomitant]
  6. NORVASC [Concomitant]

REACTIONS (5)
  - BLOOD PRESSURE SYSTOLIC DECREASED [None]
  - DYSPHONIA [None]
  - RESPIRATORY DISTRESS [None]
  - SWOLLEN TONGUE [None]
  - TACHYCARDIA [None]
